FAERS Safety Report 8471256 (Version 2)
Quarter: 2014Q2

REPORT INFORMATION
  Report Type: Spontaneous
  Country: US (occurrence: US)
  Receive Date: 20120322
  Receipt Date: 20140414
  Transmission Date: 20141212
  Serious: Yes (Other)
  Sender: FDA-Public Use
  Company Number: US-PFIZER INC-2012072516

PATIENT
  Age: 59 Year
  Sex: Female
  Weight: 83.9 kg

DRUGS (11)
  1. LYRICA [Suspect]
     Indication: FIBROMYALGIA
     Dosage: TWO 75MG CAPSULES, 2X/DAY
     Route: 048
     Dates: start: 2011
  2. LYRICA [Suspect]
     Dosage: 75 MG, 2X/DAY
     Route: 048
     Dates: start: 201201
  3. LYRICA [Suspect]
     Dosage: 75 MG, DAILY
     Route: 048
  4. LYRICA [Suspect]
     Dosage: UNK
     Route: 048
     Dates: start: 201201
  5. LYRICA [Suspect]
     Dosage: 300 MG, DAILY
     Route: 048
     Dates: start: 2012
  6. LYRICA [Suspect]
     Dosage: 25 MG, DAILY
     Dates: start: 201404
  7. LYRICA [Suspect]
     Dosage: 50 MG, DAILY
  8. TOPROL XL [Suspect]
     Indication: HYPOTENSION
     Dosage: UNK
  9. CRESTOR [Suspect]
     Indication: BLOOD CHOLESTEROL INCREASED
     Dosage: UNK
  10. NEXIUM [Concomitant]
     Indication: GASTROOESOPHAGEAL REFLUX DISEASE
     Dosage: UNK
  11. XANAX [Concomitant]
     Indication: ANXIETY
     Dosage: 1 MG, 2X/DAY

REACTIONS (12)
  - Weight increased [Unknown]
  - Blood cholesterol increased [Unknown]
  - Influenza like illness [Recovered/Resolved]
  - Drug ineffective [Unknown]
  - Pain [Recovered/Resolved]
  - Malaise [Recovered/Resolved]
  - Dizziness [Recovered/Resolved]
  - Drug intolerance [Unknown]
  - Headache [Unknown]
  - Cough [Unknown]
  - Pain of skin [Unknown]
  - Skin sensitisation [Unknown]
